FAERS Safety Report 9862370 (Version 1)
Quarter: 2014Q1

REPORT INFORMATION
  Report Type: Spontaneous
  Country: US (occurrence: US)
  Receive Date: 20140203
  Receipt Date: 20140203
  Transmission Date: 20141002
  Serious: Yes (Hospitalization)
  Sender: FDA-Public Use
  Company Number: US-BAYER-2014-017030

PATIENT
  Age: 36 Year
  Sex: Female
  Weight: 78.46 kg

DRUGS (8)
  1. YAZ [Suspect]
  2. YASMIN [Suspect]
  3. VAGISIL [Concomitant]
  4. MONISTAT [Concomitant]
  5. DIFLUCAN [Concomitant]
     Dosage: 150 MG, UNK
  6. NYSTATIN [Concomitant]
     Dosage: TWICE DAILY TO AFFECTED AREA
  7. HYDROCODONE/ACETAMINOPHEN [Concomitant]
  8. LEVOTHYROXIN [Concomitant]
     Dosage: 75 ?G, UNK

REACTIONS (2)
  - Pulmonary embolism [None]
  - Deep vein thrombosis [None]
